FAERS Safety Report 14599930 (Version 1)
Quarter: 2018Q1

REPORT INFORMATION
  Report Type: Spontaneous
  Country: US (occurrence: US)
  Receive Date: 20180304
  Receipt Date: 20180304
  Transmission Date: 20180509
  Serious: Yes (Other)
  Sender: FDA-Public Use
  Company Number: None

PATIENT
  Age: 50 Year
  Sex: Female
  Weight: 126 kg

DRUGS (3)
  1. SOTALOL HCL [Suspect]
     Active Substance: SOTALOL
     Indication: MIGRAINE
     Route: 048
     Dates: start: 20180209, end: 20180216
  2. SOTALOL HCL [Suspect]
     Active Substance: SOTALOL
     Indication: SUPRAVENTRICULAR TACHYCARDIA
     Route: 048
     Dates: start: 20180209, end: 20180216
  3. SOTALOL HCL [Suspect]
     Active Substance: SOTALOL
     Indication: ATRIAL TACHYCARDIA
     Route: 048
     Dates: start: 20180209, end: 20180216

REACTIONS (4)
  - Headache [None]
  - Condition aggravated [None]
  - Palpitations [None]
  - Product substitution issue [None]

NARRATIVE: CASE EVENT DATE: 20180216
